FAERS Safety Report 5228805-8 (Version None)
Quarter: 2007Q1

REPORT INFORMATION
  Report Type: 
  Country: None (occurrence: None)
  Receive Date: 20070131
  Receipt Date: 20070122
  Transmission Date: 20070707
  Serious: Yes (Other)
  Sender: FDA-Public Use
  Company Number: L07-IND-00341-02

PATIENT
  Age: 65 Year
  Sex: Male

DRUGS (3)
  1. ESCITALOPRAM OXALATE [Suspect]
     Indication: GENERALISED ANXIETY DISORDER
     Dosage: 10 MG QD
  2. ATENOLOL [Concomitant]
  3. AMLODIPINE [Concomitant]

REACTIONS (2)
  - GRAND MAL CONVULSION [None]
  - HYPONATRAEMIA [None]
